FAERS Safety Report 6576375-4 (Version None)
Quarter: 2010Q1

REPORT INFORMATION
  Report Type: 
  Country: None (occurrence: None)
  Receive Date: 20100210
  Receipt Date: 20100203
  Transmission Date: 20100710
  Serious: Yes (Hospitalization, Other)
  Sender: FDA-Public Use
  Company Number: US-JNJFOC-20100202556

PATIENT
  Sex: Male
  Weight: 81.65 kg

DRUGS (4)
  1. SANDOZ FENTANYL TRANSDERMAL SYSTEM [Suspect]
     Indication: PAIN
     Route: 062
  2. FENTANYL [Suspect]
     Indication: PAIN
     Route: 062
  3. PERCOCET [Concomitant]
     Indication: PAIN
     Route: 048
  4. VIOKASE [Concomitant]
     Indication: PANCREATITIS CHRONIC
     Route: 048

REACTIONS (2)
  - ABNORMAL LOSS OF WEIGHT [None]
  - PNEUMONIA [None]
